FAERS Safety Report 5631731-3 (Version None)
Quarter: 2008Q1

REPORT INFORMATION
  Report Type: 
  Country: None (occurrence: None)
  Receive Date: 20080220
  Receipt Date: 20080212
  Transmission Date: 20080703
  Serious: Yes (Hospitalization, Other)
  Sender: FDA-Public Use
  Company Number: DE-BRISTOL-MYERS SQUIBB COMPANY-14059778

PATIENT
  Age: 60 Year
  Sex: Male

DRUGS (2)
  1. ERBITUX [Suspect]
     Indication: COLON CANCER RECURRENT
     Dates: start: 20071212, end: 20080116
  2. IRINOTECAN HCL [Suspect]
     Indication: COLON CANCER RECURRENT

REACTIONS (3)
  - HERPES ZOSTER [None]
  - SKIN NECROSIS [None]
  - SKIN REACTION [None]
